FAERS Safety Report 15506207 (Version 1)
Quarter: 2018Q4

REPORT INFORMATION
  Report Type: Spontaneous
  Country: IT (occurrence: IT)
  Receive Date: 20181016
  Receipt Date: 20181016
  Transmission Date: 20190205
  Serious: Yes (Hospitalization, Other)
  Sender: FDA-Public Use
  Company Number: IT-VISTAPHARM, INC.-VER201810-000899

PATIENT
  Sex: Male
  Weight: 2.92 kg

DRUGS (1)
  1. MORPHINE [Suspect]
     Active Substance: MORPHINE
     Dosage: UNKNOWN
     Route: 064

REACTIONS (2)
  - Foetal exposure during pregnancy [Unknown]
  - Supraventricular tachycardia [Recovered/Resolved]
